FAERS Safety Report 9356187 (Version 2)
Quarter: 2013Q4

REPORT INFORMATION
  Report Type: Report from Study
  Country: JP (occurrence: JP)
  Receive Date: 20130619
  Receipt Date: 20131011
  Transmission Date: 20140711
  Serious: Yes (Other)
  Sender: FDA-Public Use
  Company Number: JP-GLAXOSMITHKLINE-B0887747A

PATIENT
  Age: 65 Year
  Sex: Female
  Weight: 44 kg

DRUGS (7)
  1. TYKERB [Suspect]
     Indication: BREAST CANCER
     Route: 048
     Dates: start: 20120206, end: 20120701
  2. XELODA [Suspect]
     Indication: BREAST CANCER
     Route: 048
     Dates: start: 20120206, end: 20120701
  3. HERCEPTIN [Suspect]
     Indication: BREAST CANCER
     Dates: start: 20111024, end: 20120125
  4. HERCEPTIN [Suspect]
     Indication: BREAST CANCER
     Dates: start: 20120709
  5. PACLITAXEL [Suspect]
     Indication: BREAST CANCER
     Dates: start: 20111024, end: 20120125
  6. PACLITAXEL [Suspect]
     Indication: BREAST CANCER
     Dates: start: 20120709
  7. EPIRUBICIN HYDROCHLORIDE [Suspect]
     Indication: BREAST CANCER
     Dates: start: 20110720, end: 20110929

REACTIONS (3)
  - Ventricular hypokinesia [Not Recovered/Not Resolved]
  - Hepatic function abnormal [Recovered/Resolved]
  - Palmar-plantar erythrodysaesthesia syndrome [Recovered/Resolved]
